FAERS Safety Report 7558851-0 (Version None)
Quarter: 2011Q2

REPORT INFORMATION
  Report Type: 
  Country: None (occurrence: None)
  Receive Date: 20110613
  Receipt Date: 20110530
  Transmission Date: 20111010
  Serious: Yes (Other)
  Sender: FDA-Public Use
  Company Number: JP-2011-10875

PATIENT
  Age: 65 Year
  Sex: Female

DRUGS (5)
  1. ARGATROBAN HYDRATE (ARGATROBAN HYDRATE) [Concomitant]
  2. ASPIRIN [Concomitant]
  3. EDARAVONE (EDARAVONE) [Concomitant]
  4. PLETAL [Suspect]
     Indication: CEREBRAL INFARCTION
     Dosage: ORAL
     Route: 048
  5. HEPARIN NA (HEPARIN SODIUM) [Concomitant]

REACTIONS (1)
  - HAEMORRHAGIC INFARCTION [None]
